FAERS Safety Report 7229245-2 (Version None)
Quarter: 2011Q1

REPORT INFORMATION
  Report Type: 
  Country: None (occurrence: None)
  Receive Date: 20110117
  Receipt Date: 20110113
  Transmission Date: 20110831
  Serious: Yes (Other)
  Sender: FDA-Public Use
  Company Number: ES-ABBOTT-11P-144-0697452-00

PATIENT
  Age: 9 Year
  Sex: Female

DRUGS (4)
  1. DACORTIN [Suspect]
     Indication: PNEUMONIA
     Route: 048
     Dates: start: 20090201
  2. BREMON IV [Suspect]
     Indication: PNEUMONIA
     Route: 042
     Dates: start: 20090219, end: 20090225
  3. PREDNISOLONE [Suspect]
     Indication: PNEUMONIA
     Route: 042
     Dates: start: 20090223, end: 20090225
  4. URBASON [Suspect]
     Indication: PNEUMONIA
     Dates: start: 20090220, end: 20090223

REACTIONS (1)
  - THROMBOCYTOSIS [None]
